FAERS Safety Report 7548607-7 (Version None)
Quarter: 2011Q2

REPORT INFORMATION
  Report Type: 
  Country: None (occurrence: None)
  Receive Date: 20110615
  Receipt Date: 20110606
  Transmission Date: 20111010
  Serious: Yes (Death, Other)
  Sender: FDA-Public Use
  Company Number: MX-SANOFI-AVENTIS-2011SA035743

PATIENT
  Age: 56 Year
  Sex: Male

DRUGS (2)
  1. LANTUS [Suspect]
     Indication: DIABETES MELLITUS
     Route: 058
  2. INSULINS AND ANALOGUES,INTERMEDIATE-ACTING [Concomitant]
     Indication: DIABETES MELLITUS
     Route: 058
     Dates: end: 20101002

REACTIONS (1)
  - CARDIAC ARREST [None]
